FAERS Safety Report 16624802 (Version 1)
Quarter: 2019Q3

REPORT INFORMATION
  Report Type: Spontaneous
  Country: US (occurrence: US)
  Receive Date: 20190724
  Receipt Date: 20190724
  Transmission Date: 20191004
  Serious: Yes (Hospitalization, Other)
  Sender: FDA-Public Use
  Company Number: US-ROCHE-2353716

PATIENT
  Sex: Male

DRUGS (1)
  1. OCREVUS [Suspect]
     Active Substance: OCRELIZUMAB
     Indication: PRODUCT USED FOR UNKNOWN INDICATION
     Dosage: LAST TREATMENT ON 20/NOV/2018
     Route: 065

REACTIONS (4)
  - Neutrophil count decreased [Unknown]
  - Eye infection [Unknown]
  - Infection [Unknown]
  - White blood cell count decreased [Unknown]
